FAERS Safety Report 8377260-8 (Version None)
Quarter: 2012Q1

REPORT INFORMATION
  Report Type: 
  Country: None (occurrence: None)
  Receive Date: 20120323
  Receipt Date: 20110324
  Transmission Date: 20120608
  Serious: Yes (Other)
  Sender: FDA-Public Use
  Company Number: 163-21880-11033043

PATIENT
  Age: 66 Year
  Sex: Female

DRUGS (4)
  1. REVLIMID [Suspect]
     Indication: MULTIPLE MYELOMA
     Dosage: 25 MG, QD X21 DAYS, PO 25 MG, DAILY FOR 21 DAYS, PO 15 MG, QD X21 DAYS, PO
     Route: 048
     Dates: start: 20110301
  2. REVLIMID [Suspect]
     Indication: MULTIPLE MYELOMA
     Dosage: 25 MG, QD X21 DAYS, PO 25 MG, DAILY FOR 21 DAYS, PO 15 MG, QD X21 DAYS, PO
     Route: 048
     Dates: start: 20100223
  3. REVLIMID [Suspect]
     Indication: MULTIPLE MYELOMA
     Dosage: 25 MG, QD X21 DAYS, PO 25 MG, DAILY FOR 21 DAYS, PO 15 MG, QD X21 DAYS, PO
     Route: 048
     Dates: start: 20080401
  4. DEXAMETHASONE [Concomitant]

REACTIONS (2)
  - NEUTROPHIL COUNT DECREASED [None]
  - WHITE BLOOD CELL COUNT DECREASED [None]
